FAERS Safety Report 18955312 (Version 2)
Quarter: 2021Q1

REPORT INFORMATION
  Report Type: Spontaneous
  Country: US (occurrence: US)
  Receive Date: 20210301
  Receipt Date: 20210310
  Transmission Date: 20210420
  Serious: Yes (Other)
  Sender: FDA-Public Use
  Company Number: US-PFIZER INC-2021198017

PATIENT
  Age: 8 Year
  Sex: Male

DRUGS (10)
  1. CYTARABINE. [Concomitant]
     Active Substance: CYTARABINE
     Indication: HISTIOCYTIC SARCOMA
     Dosage: UNK (TRIPLE INTRATHECAL (IT) CHEMOTHERAPY)
     Route: 039
  2. CYTARABINE. [Concomitant]
     Active Substance: CYTARABINE
     Indication: HISTIOCYTIC SARCOMA
  3. CLOFARABINE. [Concomitant]
     Active Substance: CLOFARABINE
     Indication: XANTHOGRANULOMA
     Dosage: UNK, CYCLIC
  4. METHOTREXATE SODIUM. [Suspect]
     Active Substance: METHOTREXATE SODIUM
     Indication: XANTHOGRANULOMA
  5. HYDROCORTISONE. [Concomitant]
     Active Substance: HYDROCORTISONE
     Indication: HISTIOCYTIC SARCOMA
  6. CYTARABINE. [Concomitant]
     Active Substance: CYTARABINE
     Indication: XANTHOGRANULOMA
  7. CYTARABINE. [Concomitant]
     Active Substance: CYTARABINE
     Indication: XANTHOGRANULOMA
     Dosage: UNK UNK, CYCLIC
  8. CLOFARABINE. [Concomitant]
     Active Substance: CLOFARABINE
     Indication: HISTIOCYTIC SARCOMA
  9. METHOTREXATE SODIUM. [Suspect]
     Active Substance: METHOTREXATE SODIUM
     Indication: HISTIOCYTIC SARCOMA
     Dosage: UNK (TRIPLE INTRATHECAL (IT) CHEMOTHERAPY)
     Route: 039
  10. HYDROCORTISONE. [Concomitant]
     Active Substance: HYDROCORTISONE
     Indication: XANTHOGRANULOMA
     Dosage: UNK (TRIPLE INTRATHECAL (IT) CHEMOTHERAPY)
     Route: 037

REACTIONS (3)
  - Demyelination [Unknown]
  - Seizure [Unknown]
  - Toxicity to various agents [Unknown]
